FAERS Safety Report 6301719-8 (Version None)
Quarter: 2009Q3

REPORT INFORMATION
  Report Type: 
  Country: None (occurrence: None)
  Receive Date: 20090807
  Receipt Date: 20090729
  Transmission Date: 20100115
  Serious: Yes (Other)
  Sender: FDA-Public Use
  Company Number: GB-ELI_LILLY_AND_COMPANY-GB200907006669

PATIENT
  Age: 75 Year
  Sex: Male
  Weight: 62.7 kg

DRUGS (20)
  1. CYMBALTA [Suspect]
     Indication: DEPRESSION
     Dosage: 30 MG, DAILY (1/D)
     Route: 048
     Dates: start: 20090626, end: 20090709
  2. ARIPIPRAZOLE [Concomitant]
     Indication: MAJOR DEPRESSION
     Dosage: 5 MG, DAILY (1/D)
     Route: 048
     Dates: start: 20090626
  3. AMIODARONE HYDROCHLORIDE [Concomitant]
     Dosage: UNK, UNKNOWN
     Route: 065
  4. AMISULPRIDE [Concomitant]
     Dosage: UNK, UNKNOWN
     Route: 065
  5. ASPIRIN [Concomitant]
     Dosage: UNK, UNKNOWN
     Route: 065
  6. CALCICHEW D3 [Concomitant]
     Dosage: UNK, UNKNOWN
     Route: 065
  7. CEPHALEXIN [Concomitant]
     Dosage: UNK, UNKNOWN
     Route: 065
  8. CHLORAMPHENICOL [Concomitant]
     Dosage: UNK, UNKNOWN
     Route: 065
  9. CLOPIDOGREL [Concomitant]
     Dosage: UNK, UNKNOWN
     Route: 065
  10. DIAZEPAM [Concomitant]
     Dosage: UNK, UNKNOWN
     Route: 065
  11. GLANDOSANE [Concomitant]
     Dosage: UNK, UNKNOWN
     Route: 065
  12. HYDROXOCOBALAMIN [Concomitant]
     Dosage: UNK, UNKNOWN
     Route: 065
  13. LACTULOSE [Concomitant]
     Dosage: UNK, UNKNOWN
     Route: 065
  14. LEVOTHYROXINE SODIUM [Concomitant]
     Dosage: UNK, UNKNOWN
     Route: 065
  15. LORAZEPAM [Concomitant]
     Dosage: UNK, UNKNOWN
     Route: 065
  16. MIRTAZAPINE [Concomitant]
     Dosage: UNK, UNKNOWN
     Route: 065
  17. SERTRALINE HYDROCHLORIDE [Concomitant]
     Dosage: UNK, UNKNOWN
     Route: 065
  18. TAMSULOSIN HYDROCHLORIDE [Concomitant]
     Dosage: UNK, UNKNOWN
     Route: 065
  19. TRIMETHOPRIM [Concomitant]
     Dosage: UNK, UNKNOWN
     Route: 065
  20. ZOPICLONE [Concomitant]
     Dosage: UNK, UNKNOWN
     Route: 065

REACTIONS (3)
  - APHTHOUS STOMATITIS [None]
  - PRURITUS [None]
  - RASH [None]
